FAERS Safety Report 17799947 (Version 1)
Quarter: 2020Q2

REPORT INFORMATION
  Report Type: Spontaneous
  Country: CN (occurrence: CN)
  Receive Date: 20200518
  Receipt Date: 20200518
  Transmission Date: 20200714
  Serious: Yes (Hospitalization, Other)
  Sender: FDA-Public Use
  Company Number: CN-009507513-2005CHN003195

PATIENT
  Age: 68 Year
  Sex: Female

DRUGS (1)
  1. ZOCOR [Suspect]
     Active Substance: SIMVASTATIN
     Indication: LIPIDS INCREASED
     Dosage: 20 MG
     Route: 048
     Dates: start: 20200301, end: 20200406

REACTIONS (10)
  - Discomfort [Recovering/Resolving]
  - Pain in extremity [Recovering/Resolving]
  - Adverse event [Unknown]
  - Hypertension [Unknown]
  - Epistaxis [Unknown]
  - Coronary artery stenosis [Unknown]
  - Carotid artery stenosis [Unknown]
  - Diabetes mellitus [Unknown]
  - Diabetic neuropathy [Unknown]
  - Asthenia [Recovering/Resolving]

NARRATIVE: CASE EVENT DATE: 2020
